FAERS Safety Report 5990604-7 (Version None)
Quarter: 2008Q4

REPORT INFORMATION
  Report Type: 
  Country: None (occurrence: None)
  Receive Date: 20081211
  Receipt Date: 20081209
  Transmission Date: 20090506
  Serious: Yes (Other)
  Sender: FDA-Public Use
  Company Number: A0759613A

PATIENT
  Age: 79 Year
  Sex: Female

DRUGS (34)
  1. LOVAZA [Suspect]
     Dosage: 2G TWICE PER DAY
     Route: 048
     Dates: start: 20081205, end: 20081205
  2. LOMOTIL [Concomitant]
  3. HYDROCODONE BITARTRATE [Concomitant]
  4. MAGNESIUM SULFATE [Concomitant]
  5. UNKNOWN DRUG [Concomitant]
  6. METOPROLOL [Concomitant]
  7. SKELAXIN [Concomitant]
  8. COENZYME Q10 [Concomitant]
  9. VIT D [Concomitant]
  10. GREEN TEA [Concomitant]
  11. ESTER C [Concomitant]
  12. MUCINEX [Concomitant]
  13. CRANBERRY [Concomitant]
  14. COLOSTRUM [Concomitant]
  15. LUTEIN [Concomitant]
  16. VITAMIN B COMPLEX CAP [Concomitant]
  17. VITAMIN B-12 [Concomitant]
  18. GLUCOSAMINE [Concomitant]
  19. NAPROXEN [Concomitant]
  20. CALCIUM [Concomitant]
  21. PROVIGIL [Concomitant]
  22. PROTONIX [Concomitant]
  23. COLLAGEN [Concomitant]
  24. NORVASC [Concomitant]
  25. PHENAZOPYRIDINE HCL TAB [Concomitant]
  26. ALLERGY SHOTS [Concomitant]
  27. ACIDOPHILUS [Concomitant]
  28. POTASSIUM CHLORIDE [Concomitant]
  29. GLUCOPHAGE [Concomitant]
  30. EFFEXOR [Concomitant]
  31. TRAZODONE HCL [Concomitant]
  32. TRAVATAN [Concomitant]
  33. MULTI-VITAMIN [Concomitant]
  34. CONDROINTANT [Concomitant]

REACTIONS (3)
  - DIARRHOEA [None]
  - MELAENA [None]
  - MUSCLE SPASMS [None]
